FAERS Safety Report 4537227-4 (Version None)
Quarter: 2004Q4

REPORT INFORMATION
  Report Type: 
  Country: None (occurrence: None)
  Receive Date: 20041223
  Receipt Date: 20041222
  Transmission Date: 20050328
  Serious: Yes (Death)
  Sender: FDA-Public Use
  Company Number: PHBS2004RU17156

PATIENT
  Sex: Male

DRUGS (1)
  1. FORADIL [Suspect]
     Dosage: 24 UG/DAY

REACTIONS (1)
  - MYOCARDIAL INFARCTION [None]
